FAERS Safety Report 21591415 (Version 2)
Quarter: 2022Q4

REPORT INFORMATION
  Report Type: Spontaneous
  Country: US (occurrence: US)
  Receive Date: 20221114
  Receipt Date: 20221213
  Transmission Date: 20230113
  Serious: No
  Sender: FDA-Public Use
  Company Number: US-009507513-2210USA010305

PATIENT
  Age: 70 Year
  Sex: Male

DRUGS (2)
  1. STROMECTOL [Suspect]
     Active Substance: IVERMECTIN
     Indication: Scab
     Dosage: 200 MICROGRAM PER KILOGRAM
     Route: 048
     Dates: start: 2022
  2. PERMETHRIN [Concomitant]
     Active Substance: PERMETHRIN
     Indication: Scab
     Dosage: UNK
     Route: 061
     Dates: start: 2022

REACTIONS (1)
  - Product use in unapproved indication [Unknown]

NARRATIVE: CASE EVENT DATE: 20220101
